FAERS Safety Report 23201344 (Version 5)
Quarter: 2024Q4

REPORT INFORMATION
  Report Type: Other
  Country: US (occurrence: US)
  Receive Date: 20231118
  Receipt Date: 20241106
  Transmission Date: 20250114
  Serious: No
  Sender: TRAVERE THERAPEUTICS
  Company Number: US-TRAVERE-2023TVT00568

PATIENT
  Age: 41 Year
  Sex: Female

DRUGS (7)
  1. FILSPARI [Suspect]
     Active Substance: SPARSENTAN
     Indication: IgA nephropathy
     Route: 048
     Dates: start: 20230918
  2. FILSPARI [Suspect]
     Active Substance: SPARSENTAN
     Dosage: 400 MG
     Route: 048
  3. FILSPARI [Suspect]
     Active Substance: SPARSENTAN
     Dosage: 400 MG
     Route: 048
     Dates: start: 20231017, end: 20231120
  4. FILSPARI [Suspect]
     Active Substance: SPARSENTAN
     Route: 048
  5. COVID vaccine [Concomitant]
  6. LEFLUNOMIDE [Concomitant]
     Active Substance: LEFLUNOMIDE
  7. AMLODIPINE [Concomitant]
     Active Substance: AMLODIPINE BESYLATE

REACTIONS (9)
  - Nausea [None]
  - Pollakiuria [Unknown]
  - Energy increased [Unknown]
  - Vomiting [Unknown]
  - Thirst [Unknown]
  - Illness [Unknown]
  - Abdominal pain upper [Unknown]
  - Abdominal discomfort [None]
  - Tongue coated [Unknown]
